FAERS Safety Report 16129202 (Version 1)
Quarter: 2019Q1

REPORT INFORMATION
  Report Type: Spontaneous
  Country: DE (occurrence: DE)
  Receive Date: 20190328
  Receipt Date: 20190328
  Transmission Date: 20190418
  Serious: Yes (Other)
  Sender: FDA-Public Use
  Company Number: DE-DENTSPLY-2019SCDP000175

PATIENT
  Age: 52 Year
  Sex: Female

DRUGS (1)
  1. MEPIVACAINE HCL [Suspect]
     Active Substance: MEPIVACAINE\MEPIVACAINE HYDROCHLORIDE
     Indication: SPINAL PAIN
     Dosage: SOLUTION FOR INJECTION
     Route: 042
     Dates: start: 2018, end: 2018

REACTIONS (6)
  - Paraesthesia [Recovered/Resolved]
  - Medication error [Unknown]
  - Blood pressure increased [None]
  - Palpitations [Recovered/Resolved]
  - Arrhythmia [None]
  - Dizziness [Recovered/Resolved]

NARRATIVE: CASE EVENT DATE: 2018
